FAERS Safety Report 11937586 (Version 3)
Quarter: 2016Q1

REPORT INFORMATION
  Report Type: Report from Study
  Country: FR (occurrence: FR)
  Receive Date: 20160122
  Receipt Date: 20160301
  Transmission Date: 20160526
  Serious: Yes (Hospitalization)
  Sender: FDA-Public Use
  Company Number: FR-ROCHE-1691930

PATIENT
  Age: 72 Year
  Sex: Female
  Weight: 42.2 kg

DRUGS (19)
  1. SEROPRAM [Concomitant]
     Active Substance: CITALOPRAM HYDROBROMIDE
     Route: 042
  2. CORTANCYL [Concomitant]
     Active Substance: PREDNISONE
     Route: 048
  3. ZOPHREN [Concomitant]
     Active Substance: ONDANSETRON
  4. LYSANXIA [Concomitant]
     Active Substance: PRAZEPAM
  5. VEMURAFENIB [Suspect]
     Active Substance: VEMURAFENIB
     Indication: NEOPLASM MALIGNANT
     Dosage: DATE OF LAST DOSE PRIOR TO SAE: 31/DEC/2015?CUMULATIVE DOSE SINCE THE 1ST ADMINISTRATION: 31680 MG
     Route: 048
     Dates: start: 20151214
  6. PARACETAMOL [Concomitant]
     Active Substance: ACETAMINOPHEN
     Route: 065
  7. AMOXICILLIN. [Concomitant]
     Active Substance: AMOXICILLIN
     Route: 065
     Dates: start: 20151216, end: 20151223
  8. VEMURAFENIB [Suspect]
     Active Substance: VEMURAFENIB
     Dosage: MORNING AND EVENING
     Route: 048
     Dates: start: 20160128
  9. LYRICA [Concomitant]
     Active Substance: PREGABALIN
     Route: 065
  10. LARGACTIL [Concomitant]
     Active Substance: CHLORPROMAZINE
  11. TRIFLUCAN [Concomitant]
     Active Substance: FLUCONAZOLE
  12. MOSCONTIN [Concomitant]
     Active Substance: MORPHINE SULFATE
     Route: 048
  13. ALIMTA [Concomitant]
     Active Substance: PEMETREXED DISODIUM
  14. XGEVA [Concomitant]
     Active Substance: DENOSUMAB
     Dosage: LAST ADMINISTARTION ON 02/JAN/2016
     Route: 065
  15. INNOHEP MULTI [Concomitant]
     Route: 058
  16. PRIMPERAN [Concomitant]
     Active Substance: METOCLOPRAMIDE HYDROCHLORIDE
     Route: 048
  17. CACIT D3 [Concomitant]
     Active Substance: CALCIUM\CHOLECALCIFEROL
     Indication: PROPHYLAXIS
     Route: 048
  18. CISPLATINE [Concomitant]
     Active Substance: CISPLATIN
  19. LYRICA [Concomitant]
     Active Substance: PREGABALIN
     Dosage: 1 CAPSULE MORNING AND EVENING
     Route: 048

REACTIONS (1)
  - Pyelonephritis acute [Recovered/Resolved]

NARRATIVE: CASE EVENT DATE: 20160106
